FAERS Safety Report 6772331-1 (Version None)
Quarter: 2010Q2

REPORT INFORMATION
  Report Type: 
  Country: None (occurrence: None)
  Receive Date: 20100616
  Receipt Date: 20091026
  Transmission Date: 20101027
  Serious: No
  Sender: FDA-Public Use
  Company Number: US-ASTRAZENECA-2009SE22654

PATIENT
  Age: 7 Year
  Sex: Female

DRUGS (3)
  1. PULMICORT RESPULES [Suspect]
     Indication: PNEUMONIA
     Route: 055
  2. XOPENEX [Concomitant]
  3. BENADRYL [Concomitant]

REACTIONS (2)
  - COUGH [None]
  - PRODUCT TASTE ABNORMAL [None]
